FAERS Safety Report 17368930 (Version 1)
Quarter: 2020Q1

REPORT INFORMATION
  Report Type: Spontaneous
  Country: US (occurrence: US)
  Receive Date: 20200204
  Receipt Date: 20200204
  Transmission Date: 20200409
  Serious: No
  Sender: FDA-Public Use
  Company Number: US-ENDO PHARMACEUTICALS INC-2019-107907

PATIENT
  Age: 62 Year
  Sex: Female

DRUGS (2)
  1. BUPROPION HYDROCHLORIDE. [Suspect]
     Active Substance: BUPROPION HYDROCHLORIDE
     Indication: PRODUCT USED FOR UNKNOWN INDICATION
     Dosage: 300 MG, DAILY IN THE MORNING
     Route: 065
     Dates: start: 20190714
  2. BUPROPION HYDROCHLORIDE. [Suspect]
     Active Substance: BUPROPION HYDROCHLORIDE
     Indication: PRODUCT USED FOR UNKNOWN INDICATION
     Dosage: 150 MG, DAILY
     Route: 065

REACTIONS (8)
  - Affect lability [Unknown]
  - Intentional product use issue [Unknown]
  - Dyspnoea [Unknown]
  - Flatulence [Unknown]
  - Hyperhidrosis [Unknown]
  - Dysphagia [Unknown]
  - Dizziness [Unknown]
  - Stress [Unknown]
